FAERS Safety Report 10610916 (Version 5)
Quarter: 2015Q4

REPORT INFORMATION
  Report Type: Spontaneous
  Country: US (occurrence: US)
  Receive Date: 20141126
  Receipt Date: 20151014
  Transmission Date: 20160304
  Serious: Yes (Disabling, Other)
  Sender: FDA-Public Use
  Company Number: US-ACTELION-A-US2014-107326

PATIENT
  Age: 69 Year
  Sex: Female

DRUGS (14)
  1. NAPROXEN. [Concomitant]
     Active Substance: NAPROXEN
  2. POTASSIUM [Concomitant]
     Active Substance: POTASSIUM
  3. HYDROCHLOROTHIAZIDE. [Concomitant]
     Active Substance: HYDROCHLOROTHIAZIDE
  4. BONIVA [Concomitant]
     Active Substance: IBANDRONATE SODIUM
  5. METOPROLOL [Concomitant]
     Active Substance: METOPROLOL
  6. CLONAZEPAM. [Concomitant]
     Active Substance: CLONAZEPAM
  7. SERTRALINE [Concomitant]
     Active Substance: SERTRALINE HYDROCHLORIDE
  8. OPSUMIT [Suspect]
     Active Substance: MACITENTAN
     Indication: PULMONARY ARTERIAL HYPERTENSION
     Dosage: 10 MG, QD
     Route: 048
     Dates: start: 20140920, end: 20141113
  9. COQ10 [Concomitant]
     Active Substance: UBIDECARENONE
  10. PREDNISONE. [Concomitant]
     Active Substance: PREDNISONE
  11. AMLODIPINE [Concomitant]
     Active Substance: AMLODIPINE BESYLATE
  12. PRAMIPEXOLE. [Concomitant]
     Active Substance: PRAMIPEXOLE
  13. FUROSEMIDE. [Concomitant]
     Active Substance: FUROSEMIDE
  14. OMEPRAZOLE. [Concomitant]
     Active Substance: OMEPRAZOLE

REACTIONS (4)
  - Erythema [Not Recovered/Not Resolved]
  - Weight increased [Not Recovered/Not Resolved]
  - Oedema peripheral [Not Recovered/Not Resolved]
  - Pain in extremity [Not Recovered/Not Resolved]

NARRATIVE: CASE EVENT DATE: 20140920
